FAERS Safety Report 9282527 (Version 1)
Quarter: 2013Q2

REPORT INFORMATION
  Report Type: Spontaneous
  Country: US (occurrence: None)
  Receive Date: 20130509
  Receipt Date: 20130509
  Transmission Date: 20140414
  Serious: No
  Sender: FDA-Public Use
  Company Number: None

PATIENT
  Age: 38 Year
  Sex: Female

DRUGS (10)
  1. AUGMENTIN [Suspect]
     Dates: start: 20070828, end: 20070906
  2. INH [Suspect]
     Dates: start: 20070807, end: 20071003
  3. LEVOFLOXACIN [Suspect]
     Dates: start: 20070919, end: 20070928
  4. TRI SPRINTEC BIRTH CONTROL PILLS [Concomitant]
  5. DUONEB [Concomitant]
  6. PREDNISONE [Concomitant]
  7. HYDROXYZINE [Concomitant]
  8. ALBUTEROL [Concomitant]
  9. MOTRIN [Concomitant]
  10. LEVAQUIN [Concomitant]

REACTIONS (12)
  - Drug-induced liver injury [None]
  - Aspartate aminotransferase increased [None]
  - Alanine aminotransferase increased [None]
  - Blood alkaline phosphatase increased [None]
  - Blood bilirubin increased [None]
  - Nausea [None]
  - Chromaturia [None]
  - Pyrexia [None]
  - Abdominal pain [None]
  - Vomiting [None]
  - Pruritus [None]
  - Fatigue [None]
